FAERS Safety Report 11594642 (Version 6)
Quarter: 2016Q3

REPORT INFORMATION
  Report Type: Spontaneous
  Country: US (occurrence: US)
  Receive Date: 20151005
  Receipt Date: 20160706
  Transmission Date: 20161109
  Serious: No
  Sender: FDA-Public Use
  Company Number: US-ACTELION PHARMACEUTICALS US, INC.-A-NJ2015-124392

PATIENT
  Age: 78 Year
  Sex: Male

DRUGS (4)
  1. TRACLEER [Suspect]
     Active Substance: BOSENTAN
     Indication: PULMONARY ARTERIAL HYPERTENSION
     Dosage: 125 MG, BID
     Route: 048
     Dates: start: 20110131
  2. SILDENAFIL. [Concomitant]
     Active Substance: SILDENAFIL
  3. TYVASO [Concomitant]
     Active Substance: TREPROSTINIL
  4. COUMADIN [Concomitant]
     Active Substance: WARFARIN SODIUM

REACTIONS (15)
  - Weight decreased [Unknown]
  - Dyspnoea [Unknown]
  - Dizziness [Unknown]
  - Productive cough [Unknown]
  - Lung infection [Recovering/Resolving]
  - Thirst [Unknown]
  - Scab [Unknown]
  - Nasal congestion [Unknown]
  - Viral infection [Unknown]
  - Pneumonia [Unknown]
  - Abdominal discomfort [Unknown]
  - Asthenia [Unknown]
  - Productive cough [Recovering/Resolving]
  - Non-cardiac chest pain [Unknown]
  - Sinusitis [Unknown]
